FAERS Safety Report 5550552-3 (Version None)
Quarter: 2007Q4

REPORT INFORMATION
  Report Type: 
  Country: None (occurrence: None)
  Receive Date: 20071212
  Receipt Date: 20071130
  Transmission Date: 20080405
  Serious: Yes (Other)
  Sender: FDA-Public Use
  Company Number: HQWYE635601AUG05

PATIENT
  Sex: Female

DRUGS (6)
  1. PREMPRO [Suspect]
     Indication: HORMONE REPLACEMENT THERAPY
     Dosage: UNKNOWN
     Route: 048
     Dates: start: 19910301, end: 19990601
  2. PROGESTERONE [Suspect]
  3. MEDROXYPROGESTERONE ACETATE [Suspect]
  4. PREMARIN [Suspect]
  5. CONJUGATED ESTROGENS [Suspect]
  6. PROVERA [Suspect]

REACTIONS (1)
  - BREAST CANCER METASTATIC [None]
